FAERS Safety Report 4775297-9 (Version None)
Quarter: 2005Q3

REPORT INFORMATION
  Report Type: 
  Country: None (occurrence: None)
  Receive Date: 20050920
  Receipt Date: 20050920
  Transmission Date: 20060218
  Serious: No
  Sender: FDA-Public Use
  Company Number: None

PATIENT
  Sex: Female
  Weight: 86.6 kg

DRUGS (17)
  1. ARA-C [Suspect]
     Indication: ACUTE MYELOID LEUKAEMIA
     Dosage: SEE IMAGE
     Route: 042
     Dates: start: 20050809
  2. IDARUBICIN HCL [Suspect]
     Dosage: SEE IMAGE
     Route: 042
     Dates: start: 20050809
  3. ARA-C [Suspect]
     Dosage: SEE IMAGE
     Route: 042
     Dates: start: 20050809
  4. IDARUBICIN HCL [Suspect]
     Dosage: SEE IMAGE
     Route: 042
     Dates: start: 20050809
  5. ARA-C [Suspect]
     Dosage: SEE IMAGE
     Route: 042
     Dates: start: 20050809
  6. CELEBREX [Concomitant]
  7. COMPAZINE [Concomitant]
  8. DARVON [Concomitant]
  9. ELAVIL [Concomitant]
  10. LEVAQUIN [Concomitant]
  11. MULTI-VITAMINS [Concomitant]
  12. PREMARIN [Concomitant]
  13. PROZAC [Concomitant]
  14. SYNTHROID [Concomitant]
  15. VALTREX [Concomitant]
  16. VORICONAZOLE [Concomitant]
  17. ZOMIG [Concomitant]

REACTIONS (2)
  - BONE MARROW DEPRESSION [None]
  - NEUTROPENIA [None]
